FAERS Safety Report 13321689 (Version 1)
Quarter: 2017Q1

REPORT INFORMATION
  Report Type: Spontaneous
  Country: SE (occurrence: SE)
  Receive Date: 20170310
  Receipt Date: 20170310
  Transmission Date: 20170428
  Serious: Yes (Hospitalization, Other)
  Sender: FDA-Public Use
  Company Number: SE-PFIZER INC-2017100191

PATIENT
  Age: 58 Year
  Sex: Female

DRUGS (23)
  1. HUMALOG [Concomitant]
     Active Substance: INSULIN LISPRO
  2. BETOLVEX /00056201/ [Concomitant]
     Active Substance: CYANOCOBALAMIN
  3. LORATADIN [Concomitant]
     Active Substance: LORATADINE
     Dosage: UNK, AS NEEDED
  4. OPNOL [Concomitant]
  5. DETREMIN [Concomitant]
  6. BACTRIM [Concomitant]
     Active Substance: SULFAMETHOXAZOLE\TRIMETHOPRIM
  7. ADPORT [Concomitant]
     Active Substance: TACROLIMUS
  8. CANODERM [Concomitant]
     Dosage: UNK, AS NEEDED
  9. COSOPT [Concomitant]
     Active Substance: DORZOLAMIDE HYDROCHLORIDE\TIMOLOL MALEATE
  10. PREDNISOLON /00016201/ [Concomitant]
     Active Substance: PREDNISOLONE
  11. FURIX [Concomitant]
     Active Substance: FUROSEMIDE
     Dosage: UNK, AS NEEDED
  12. IMOVANE [Concomitant]
     Active Substance: ZOPICLONE
     Dosage: UNK, AS NEEDED
  13. XALATAN [Suspect]
     Active Substance: LATANOPROST
     Dosage: 50 MG, UNK
     Dates: start: 201701, end: 201702
  14. LEVAXIN [Concomitant]
     Active Substance: LEVOTHYROXINE SODIUM
  15. MIRTAZAPIN [Concomitant]
     Active Substance: MIRTAZAPINE
  16. LANTUS [Concomitant]
     Active Substance: INSULIN GLARGINE
  17. TROMBYL [Concomitant]
     Active Substance: ASPIRIN
  18. METOPROLOL. [Concomitant]
     Active Substance: METOPROLOL
  19. MYCOPHENOLATE MOFETIL. [Concomitant]
     Active Substance: MYCOPHENOLATE MOFETIL
  20. GLUCAGON. [Concomitant]
     Active Substance: GLUCAGON
     Dosage: UNK, AS NEEDED
  21. DOXAZOSIN [Concomitant]
     Active Substance: DOXAZOSIN\DOXAZOSIN MESYLATE
  22. ATORVASTATIN [Concomitant]
     Active Substance: ATORVASTATIN
  23. ALENDRONAT [Concomitant]
     Active Substance: ALENDRONATE SODIUM

REACTIONS (4)
  - Drug eruption [Recovered/Resolved]
  - Oedema [Unknown]
  - Blood glucose fluctuation [Unknown]
  - Hypertension [Unknown]

NARRATIVE: CASE EVENT DATE: 201701
